FAERS Safety Report 6137887-0 (Version None)
Quarter: 2009Q1

REPORT INFORMATION
  Report Type: 
  Country: None (occurrence: None)
  Receive Date: 20090326
  Receipt Date: 20090311
  Transmission Date: 20090719
  Serious: Yes (Other)
  Sender: FDA-Public Use
  Company Number: 2009S1004330

PATIENT
  Age: 16 Year
  Sex: Male
  Weight: 48 kg

DRUGS (6)
  1. RISPERIDONE [Suspect]
     Indication: AGITATION
     Dosage: 1 MG;TWICE A DAY;ORAL
     Route: 048
     Dates: start: 20071107, end: 20071113
  2. GAVISCON [Concomitant]
  3. LAMOTRIGINE [Concomitant]
  4. MELATONIN [Concomitant]
  5. MIDAZOLAM HCL [Concomitant]
  6. ZONISAMIDE [Concomitant]

REACTIONS (4)
  - DROOLING [None]
  - THIRST [None]
  - TREMOR [None]
  - VOMITING [None]
